FAERS Safety Report 6196978-9 (Version None)
Quarter: 2009Q2

REPORT INFORMATION
  Report Type: 
  Country: None (occurrence: None)
  Receive Date: 20090520
  Receipt Date: 20090511
  Transmission Date: 20091009
  Serious: Yes (Other)
  Sender: FDA-Public Use
  Company Number: PHHY2009DE18516

PATIENT
  Sex: Female
  Weight: 71 kg

DRUGS (4)
  1. EXELON [Suspect]
     Indication: DEMENTIA ALZHEIMER'S TYPE
     Dosage: 4.6 MG/24 HRS
     Route: 062
  2. EXELON [Suspect]
     Dosage: 9.5 MG/24 HRS
     Route: 062
     Dates: start: 20090201, end: 20090201
  3. EXELON [Suspect]
     Route: 062
  4. CITALOPRAM HYDROBROMIDE [Concomitant]
     Dosage: 20 MG/DAY
     Route: 048

REACTIONS (4)
  - ANXIETY [None]
  - HALLUCINATION, AUDITORY [None]
  - HALLUCINATION, VISUAL [None]
  - PARANOIA [None]
